FAERS Safety Report 8377360-2 (Version None)
Quarter: 2012Q2

REPORT INFORMATION
  Report Type: 
  Country: None (occurrence: None)
  Receive Date: 20120522
  Receipt Date: 20120516
  Transmission Date: 20120825
  Serious: Yes (Other)
  Sender: FDA-Public Use
  Company Number: US-FRI-1000030568

PATIENT
  Age: 72 Year
  Sex: Male

DRUGS (13)
  1. MEDROL [Suspect]
  2. ASPIRIN [Concomitant]
  3. XOPENEX [Concomitant]
  4. LISINOPRIL [Concomitant]
     Indication: HYPERTENSION
  5. ALBUTEROL [Concomitant]
  6. FEXOFENADINE [Concomitant]
  7. PLAVIX [Concomitant]
  8. SYMBICORT [Concomitant]
  9. DALIRESP [Suspect]
     Indication: CHRONIC OBSTRUCTIVE PULMONARY DISEASE
     Dosage: 500 MCG
     Route: 048
     Dates: start: 20120418, end: 20120502
  10. RANITIDINE [Concomitant]
  11. AMLODIPINE BESYLATE [Concomitant]
     Indication: HYPERTENSION
  12. CLONIDINE [Concomitant]
     Indication: HYPERTENSION
  13. CRESTOR [Concomitant]

REACTIONS (2)
  - MUSCLE FATIGUE [None]
  - ASTHENIA [None]
